FAERS Safety Report 7721556-7 (Version None)
Quarter: 2011Q3

REPORT INFORMATION
  Report Type: 
  Country: None (occurrence: None)
  Receive Date: 20110831
  Receipt Date: 20110824
  Transmission Date: 20111222
  Serious: Yes (Hospitalization)
  Sender: FDA-Public Use
  Company Number: FR-PFIZER INC-2011010755

PATIENT
  Age: 70 Year
  Sex: Male

DRUGS (3)
  1. VFEND [Interacting]
     Indication: CELLULITIS
  2. SIMVASTATIN [Interacting]
     Dosage: 20 MG/DAY
     Route: 048
     Dates: end: 20110101
  3. VFEND [Suspect]
     Indication: ASPERGILLOSIS
     Dosage: UNK
     Dates: start: 20101229

REACTIONS (8)
  - RESPIRATORY ACIDOSIS [None]
  - MYOPATHY [None]
  - DRUG INTERACTION [None]
  - HYPOTONIA [None]
  - BLOOD CREATINE PHOSPHOKINASE INCREASED [None]
  - PSYCHOMOTOR RETARDATION [None]
  - COMA [None]
  - HYPERCAPNIC ENCEPHALOPATHY [None]
